FAERS Safety Report 9689216 (Version 1)
Quarter: 2013Q4

REPORT INFORMATION
  Report Type: Spontaneous
  Country: US (occurrence: US)
  Receive Date: 20131114
  Receipt Date: 20131114
  Transmission Date: 20140711
  Serious: Yes (Death)
  Sender: FDA-Public Use
  Company Number: US-009507513-1311USA004445

PATIENT
  Sex: Male

DRUGS (2)
  1. JANUVIA [Suspect]
     Indication: DIABETES MELLITUS
     Dosage: 100 MG, BID
     Route: 048
     Dates: start: 200711
  2. DEXILANT [Concomitant]

REACTIONS (2)
  - Cardiac disorder [Fatal]
  - Pneumonia [Fatal]
